FAERS Safety Report 8961509 (Version 2)
Quarter: 2013Q2

REPORT INFORMATION
  Report Type: Spontaneous
  Country: US (occurrence: US)
  Receive Date: 20121213
  Receipt Date: 20130430
  Transmission Date: 20140414
  Serious: Yes (Hospitalization)
  Sender: FDA-Public Use
  Company Number: US-BAYER-2012-129887

PATIENT
  Age: 27 Year
  Sex: Female
  Weight: 120.18 kg

DRUGS (11)
  1. OCELLA [Suspect]
  2. YASMIN [Suspect]
     Indication: POLYCYSTIC OVARIES
  3. TOPAMAX [Concomitant]
     Dosage: 10 MG
     Route: 048
  4. COLESTIPOL [Concomitant]
     Dosage: 1 G, BID
     Route: 048
  5. LIALDA [Concomitant]
     Dosage: 1.2 G, TID
     Route: 048
  6. LIALDA [Concomitant]
  7. REMICADE [Concomitant]
     Dosage: 600 MG, EVERY 8 WEEKS
     Route: 042
  8. HYDROCODONE/ACETAMINOPHEN [Concomitant]
     Dosage: 5 MG-500 MG TABLET, TAKE 1 AS NEEDED
     Route: 048
  9. PERI-COLACE [Concomitant]
  10. COLACE [Concomitant]
  11. VICODIN [Concomitant]

REACTIONS (1)
  - Pulmonary embolism [None]
